FAERS Safety Report 5047972-2 (Version None)
Quarter: 2006Q3

REPORT INFORMATION
  Report Type: 
  Country: None (occurrence: None)
  Receive Date: 20060711
  Receipt Date: 20060131
  Transmission Date: 20061208
  Serious: Yes (Other)
  Sender: FDA-Public Use
  Company Number: DK-BRISTOL-MYERS SQUIBB COMPANY-13353321

PATIENT
  Age: 64 Year
  Sex: Female

DRUGS (3)
  1. STAVUDINE [Suspect]
  2. LAMIVUDINE [Suspect]
  3. ZIDOVUDINE [Suspect]

REACTIONS (2)
  - DEATH [None]
  - PANCREATITIS [None]
